FAERS Safety Report 17413392 (Version 1)
Quarter: 2020Q1

REPORT INFORMATION
  Report Type: Spontaneous
  Country: US (occurrence: US)
  Receive Date: 20200129
  Receipt Date: 20200129
  Transmission Date: 20200409
  Serious: Yes (Hospitalization)
  Sender: FDA-Public Use
  Company Number: None

PATIENT
  Age: 52 Year
  Sex: Male
  Weight: 80.8 kg

DRUGS (2)
  1. RIBOCICLIB. [Suspect]
     Active Substance: RIBOCICLIB
     Indication: CHOLANGIOCARCINOMA
     Dosage: ?          OTHER FREQUENCY:DAY 8-14;?
     Route: 048
     Dates: start: 20190530
  2. GEMCITABINE. [Suspect]
     Active Substance: GEMCITABINE
     Indication: CHOLANGIOCARCINOMA
     Dosage: ?          OTHER FREQUENCY:DAY 1, DAY 8;?
     Route: 042
     Dates: start: 20190522

REACTIONS (3)
  - Sepsis [None]
  - Bacteraemia [None]
  - Hypotension [None]
